FAERS Safety Report 7053885-7 (Version None)
Quarter: 2010Q4

REPORT INFORMATION
  Report Type: 
  Country: None (occurrence: None)
  Receive Date: 20101020
  Receipt Date: 20101012
  Transmission Date: 20110411
  Serious: Yes (Other)
  Sender: FDA-Public Use
  Company Number: FR-BRISTOL-MYERS SQUIBB COMPANY-15332265

PATIENT
  Sex: Male

DRUGS (1)
  1. SPRYCEL [Suspect]
     Dates: start: 20040101

REACTIONS (4)
  - BLADDER CANCER [None]
  - HYPOXIA [None]
  - PLEURAL EFFUSION [None]
  - RETINAL VEIN THROMBOSIS [None]
